FAERS Safety Report 24555114 (Version 1)
Quarter: 2024Q4

REPORT INFORMATION
  Report Type: Spontaneous
  Country: BE (occurrence: BE)
  Receive Date: 20241028
  Receipt Date: 20241028
  Transmission Date: 20250114
  Serious: Yes (Other)
  Sender: MYLAN
  Company Number: BE-MYLANLABS-2024M1096047

PATIENT
  Sex: Male

DRUGS (1)
  1. XANAX [Suspect]
     Active Substance: ALPRAZOLAM
     Indication: Sleep deficit
     Dosage: UNK
     Route: 065

REACTIONS (4)
  - Anterograde amnesia [Unknown]
  - Drug level above therapeutic [Unknown]
  - Intentional product misuse [Unknown]
  - Off label use [Unknown]
